FAERS Safety Report 11072834 (Version 1)
Quarter: 2015Q2

REPORT INFORMATION
  Report Type: Spontaneous
  Country: IN (occurrence: IN)
  Receive Date: 20150428
  Receipt Date: 20150428
  Transmission Date: 20150821
  Serious: Yes (Hospitalization)
  Sender: FDA-Public Use
  Company Number: IN-PFIZER INC-2015137878

PATIENT
  Age: 55 Year
  Sex: Male
  Weight: 62 kg

DRUGS (3)
  1. DALACIN [Suspect]
     Active Substance: CLINDAMYCIN\CLINDAMYCIN PHOSPHATE
     Indication: DIABETIC FOOT
     Dosage: 600 MG, 3X/DAY (EVERY 8 HOURS)
     Route: 042
  2. MAGNEX FORTE [Concomitant]
     Indication: SKIN INFECTION
     Dosage: 3 G, 2X/DAY
     Route: 042
  3. MAGNEX FORTE [Concomitant]
     Indication: SOFT TISSUE INFECTION

REACTIONS (2)
  - Chills [Unknown]
  - Hypotension [Unknown]
